FAERS Safety Report 5364637-8 (Version None)
Quarter: 2007Q2

REPORT INFORMATION
  Report Type: 
  Country: None (occurrence: None)
  Receive Date: 20070606
  Receipt Date: 20070510
  Transmission Date: 20071010
  Serious: Yes (Other)
  Sender: FDA-Public Use
  Company Number: 36966

PATIENT
  Age: 20 Year
  Sex: Male
  Weight: 113 kg

DRUGS (7)
  1. METHOTREXATE [Suspect]
     Indication: NEOPLASM MALIGNANT
     Dosage: 4.5MG/M2
     Dates: start: 20070501
  2. RESPIRIDINE [Concomitant]
  3. AMLODIPINE [Concomitant]
  4. ONDANSETRON [Concomitant]
  5. PREDNISONE [Concomitant]
  6. INSULIN ASPART [Concomitant]
  7. ADDERALL 10 [Concomitant]

REACTIONS (1)
  - RENAL FAILURE [None]
